FAERS Safety Report 4297478-3 (Version None)
Quarter: 2004Q1

REPORT INFORMATION
  Report Type: 
  Country: None (occurrence: None)
  Receive Date: 20040218
  Receipt Date: 20040211
  Transmission Date: 20041129
  Serious: Yes (Disabling, Other)
  Sender: FDA-Public Use
  Company Number: CA-GLAXOSMITHKLINE-A0498036A

PATIENT
  Age: 49 Year
  Sex: Female
  Weight: 72.7 kg

DRUGS (3)
  1. ADVAIR DISKUS 100/50 [Suspect]
     Indication: ASTHMA
     Dosage: 2PUFF TWICE PER DAY
     Route: 055
     Dates: start: 20040107, end: 20040110
  2. PULMICORT [Suspect]
     Indication: ASTHMA
     Dosage: 2PUFF TWICE PER DAY
  3. VENTOLIN [Concomitant]
     Indication: ASTHMA
     Dosage: 2PUFF AS REQUIRED
     Route: 055

REACTIONS (2)
  - CHEST DISCOMFORT [None]
  - PEAK EXPIRATORY FLOW RATE DECREASED [None]
